FAERS Safety Report 16747837 (Version 1)
Quarter: 2019Q3

REPORT INFORMATION
  Report Type: Report from Study
  Country: CO (occurrence: CO)
  Receive Date: 20190827
  Receipt Date: 20190827
  Transmission Date: 20191005
  Serious: Yes (Death, Hospitalization)
  Sender: FDA-Public Use
  Company Number: PHHY2019CO171846

PATIENT
  Age: 67 Year
  Sex: Female
  Weight: 61 kg

DRUGS (1)
  1. SANDOSTATIN LAR DEPOT [Suspect]
     Active Substance: OCTREOTIDE ACETATE
     Indication: NEUROENDOCRINE TUMOUR
     Dosage: 30 MG, QMO (EVERY 28 DAYS)
     Route: 030
     Dates: start: 20190511

REACTIONS (6)
  - Cholelithiasis [Unknown]
  - Gallbladder obstruction [Unknown]
  - General physical health deterioration [Unknown]
  - Death [Fatal]
  - Liver disorder [Unknown]
  - Yellow skin [Unknown]

NARRATIVE: CASE EVENT DATE: 20190809
